FAERS Safety Report 8041109-3 (Version None)
Quarter: 2012Q1

REPORT INFORMATION
  Report Type: 
  Country: None (occurrence: None)
  Receive Date: 20120109
  Receipt Date: 20111228
  Transmission Date: 20120608
  Serious: Yes (Death, Other)
  Sender: FDA-Public Use
  Company Number: KR-JNJFOC-20111212760

PATIENT
  Age: 26 Year
  Sex: Male
  Weight: 52 kg

DRUGS (3)
  1. DECITABINE [Suspect]
     Indication: MYELODYSPLASTIC SYNDROME
     Dosage: 20 MG/M2, INTRAVENOUS
     Route: 042
     Dates: start: 20100708, end: 20100712
  2. CIPROCTAN (CIPROFLOXACIN HYDROCHLORIDE) [Concomitant]
  3. SPORANOX [Concomitant]

REACTIONS (7)
  - INFECTION [None]
  - HEADACHE [None]
  - NEUTROPENIA [None]
  - RESPIRATORY ARREST [None]
  - MUSCULOSKELETAL STIFFNESS [None]
  - PYREXIA [None]
  - ACIDOSIS [None]
